FAERS Safety Report 6535619-5 (Version None)
Quarter: 2010Q1

REPORT INFORMATION
  Report Type: 
  Country: None (occurrence: None)
  Receive Date: 20100113
  Receipt Date: 20100105
  Transmission Date: 20100710
  Serious: Yes (Hospitalization, Other)
  Sender: FDA-Public Use
  Company Number: PHHY2009JP15645

PATIENT
  Sex: Female
  Weight: 44 kg

DRUGS (44)
  1. ICL670A ICL+DISTAB [Suspect]
     Indication: IRON OVERLOAD
     Dosage: 500 MG, QD
     Route: 048
     Dates: start: 20080716, end: 20080728
  2. ICL670A ICL+DISTAB [Suspect]
     Indication: APLASTIC ANAEMIA
     Dosage: 250 MG DAILY
     Route: 048
     Dates: start: 20080729, end: 20081128
  3. ICL670A ICL+DISTAB [Suspect]
     Dosage: 500 MG, QD
     Dates: start: 20090310, end: 20090715
  4. NEORAL [Suspect]
     Indication: APLASTIC ANAEMIA
     Dosage: 25 MG, QD
     Route: 048
     Dates: start: 20080716, end: 20081121
  5. DESFERAL [Concomitant]
     Dosage: UNK
     Route: 030
     Dates: start: 20070327, end: 20080716
  6. ALFAROL [Concomitant]
     Indication: APLASTIC ANAEMIA
     Dosage: UNK
     Route: 048
     Dates: start: 20080716, end: 20081121
  7. EVAMYL [Concomitant]
     Indication: APLASTIC ANAEMIA
     Dosage: 1 MG
     Route: 048
     Dates: start: 20080716, end: 20090116
  8. EVAMYL [Concomitant]
     Dosage: 0.5 MG, UNK
     Route: 048
     Dates: end: 20090715
  9. NEOMALLERMIN TR [Concomitant]
     Indication: APLASTIC ANAEMIA
     Dosage: 12 MG, UNK
     Route: 048
     Dates: start: 20080716, end: 20090715
  10. TAKEPRON [Concomitant]
     Indication: APLASTIC ANAEMIA
     Dosage: 30 MG, UNK
     Route: 048
     Dates: start: 20080716, end: 20081231
  11. ADONA [Concomitant]
     Indication: APLASTIC ANAEMIA
     Dosage: 30 MG, UNK
     Route: 048
     Dates: start: 20080716, end: 20090615
  12. TRANSAMIN [Concomitant]
     Indication: APLASTIC ANAEMIA
     Dosage: 750 MG, UNK
     Route: 048
     Dates: start: 20080716, end: 20090615
  13. GLAKAY [Concomitant]
     Indication: APLASTIC ANAEMIA
     Dosage: 45 MG, UNK
     Route: 048
     Dates: start: 20080716, end: 20090615
  14. PRIMOBOLAN [Concomitant]
     Indication: APLASTIC ANAEMIA
     Dosage: 15 MG, UNK
     Route: 048
     Dates: start: 20080716, end: 20090615
  15. SLOW-K [Concomitant]
     Indication: APLASTIC ANAEMIA
     Dosage: 600 MG, UNK
     Route: 048
     Dates: start: 20080716, end: 20090408
  16. PURSENNID                               /SCH/ [Concomitant]
     Indication: APLASTIC ANAEMIA
     Dosage: 24 MG, UNK
     Route: 048
     Dates: start: 20080716
  17. LASIX [Concomitant]
     Indication: APLASTIC ANAEMIA
     Dosage: 20 MG, UNK
     Route: 048
     Dates: start: 20080716, end: 20080728
  18. DIART [Concomitant]
     Indication: APLASTIC ANAEMIA
     Dosage: 60 MG, UNK
     Route: 048
     Dates: start: 20080716, end: 20090408
  19. ALDACTONE [Concomitant]
     Indication: APLASTIC ANAEMIA
     Dosage: 12.5 MG, UNK
     Route: 048
     Dates: start: 20080716, end: 20090128
  20. BAKTAR [Concomitant]
     Indication: CARDIAC FAILURE CONGESTIVE
     Dosage: 1 G, UNK
     Route: 048
     Dates: start: 20081231, end: 20090715
  21. AMLODIPINE [Concomitant]
     Indication: CARDIAC FAILURE CONGESTIVE
     Dosage: 5 MG, UNK
     Route: 048
     Dates: start: 20080716, end: 20090615
  22. ABILIT [Concomitant]
     Indication: CARDIAC FAILURE CONGESTIVE
     Dosage: 100 MG, UNK
     Route: 048
     Dates: start: 20080716, end: 20081008
  23. LUVOX [Concomitant]
     Indication: CARDIAC FAILURE CONGESTIVE
     Dosage: 50 MG, UNK
     Route: 048
     Dates: start: 20081008, end: 20090310
  24. CEFAZOLIN SODIUM [Concomitant]
     Indication: CARDIAC FAILURE CONGESTIVE
     Dosage: 4 G, UNK
     Route: 042
     Dates: start: 20081128, end: 20081201
  25. BIKLIN [Concomitant]
     Indication: CARDIAC FAILURE CONGESTIVE
     Dosage: 200 MG, UNK
     Route: 042
     Dates: start: 20081128, end: 20081213
  26. BIKLIN [Concomitant]
     Dosage: 200 MG, UNK
     Route: 042
     Dates: end: 20090628
  27. SULPERAZON [Concomitant]
     Indication: CARDIAC FAILURE CONGESTIVE
     Dosage: 2 G, UNK
     Route: 042
     Dates: start: 20081202, end: 20081222
  28. SULPERAZON [Concomitant]
     Dosage: 1 G, UNK
  29. SULPERAZON [Concomitant]
     Dosage: 2 G, UNK
     Dates: end: 20090628
  30. GRAN [Concomitant]
     Dosage: 150 UG
     Route: 042
     Dates: start: 20080716
  31. GRAN [Concomitant]
     Dosage: 150 UG, UNK
     Dates: end: 20090408
  32. ZYLORIC [Concomitant]
     Dosage: 50 MG, UNK
     Route: 048
     Dates: start: 20090330, end: 20090615
  33. AMINO ACIDS/CARBOHYDRATES/MINERALS/VITAMINS [Concomitant]
     Dosage: 100 ML, UNK
     Route: 048
     Dates: start: 20090116, end: 20090514
  34. VITAMEDIN [Concomitant]
     Dosage: 1 DF, UNK
     Route: 042
     Dates: start: 20060615, end: 20090701
  35. PHYSIO 35 [Concomitant]
     Dosage: 500 MG/L, UNK
     Dates: start: 20090615, end: 20090701
  36. GASTER [Concomitant]
     Dosage: 20 MG, UNK
     Route: 048
     Dates: start: 20090615, end: 20090701
  37. FOY [Concomitant]
     Dosage: 200 MG, UNK
     Route: 042
     Dates: start: 20090615, end: 20090701
  38. FUNGUARD [Concomitant]
     Dosage: 150 MG, UNK
     Route: 042
     Dates: start: 20090615, end: 20090621
  39. GAMIMUNE N 5% [Concomitant]
     Dosage: 5 G, UNK
     Route: 042
     Dates: start: 20090615, end: 20090616
  40. PHYSIO 140 [Concomitant]
     Dosage: 500 ML, UNK
     Route: 042
     Dates: start: 20090615, end: 20090701
  41. MINOPHAGEN C [Concomitant]
     Dosage: 40 ML, UNK
     Route: 042
     Dates: start: 20090615, end: 20090710
  42. PLATELETS [Concomitant]
     Dosage: 10 U, UNK
     Dates: start: 20090116, end: 20090715
  43. RED BLOOD CELLS [Concomitant]
     Dosage: 2 UNITS EVERY 10 DAYS
     Dates: start: 20090408, end: 20090715
  44. DIURETICS [Concomitant]

REACTIONS (8)
  - ALANINE AMINOTRANSFERASE INCREASED [None]
  - ASPARTATE AMINOTRANSFERASE INCREASED [None]
  - BLOOD CREATININE INCREASED [None]
  - BLOOD UREA INCREASED [None]
  - CHOLELITHIASIS [None]
  - DEHYDRATION [None]
  - HEPATOBILIARY INFECTION [None]
  - SERUM FERRITIN INCREASED [None]
